FAERS Safety Report 9450524 (Version 1)
Quarter: 2013Q3

REPORT INFORMATION
  Report Type: Spontaneous
  Country: IT (occurrence: IT)
  Receive Date: 20130809
  Receipt Date: 20130809
  Transmission Date: 20140515
  Serious: Yes (Hospitalization)
  Sender: FDA-Public Use
  Company Number: IT-SANOFI-AVENTIS-2013SA079064

PATIENT
  Age: 76 Year
  Sex: Male

DRUGS (11)
  1. TRIATEC [Suspect]
     Indication: HYPERTENSION
     Dosage: DOSE: 2 POSOLOGICAL UNITS
     Route: 048
     Dates: start: 20130101
  2. LASIX [Suspect]
     Indication: HYPERTENSION
     Dosage: DOSE: 3 POSOLOGICAL UNITS
     Route: 048
     Dates: start: 20130101, end: 20130710
  3. SOTALEX [Suspect]
     Indication: HYPERTENSION
     Dosage: DOSE: 1 POSOLOGICAL UNITS?STRENGTH: 80 MG
     Route: 048
     Dates: start: 20130101
  4. METFORMIN [Concomitant]
     Route: 048
  5. CARDIOASPIRIN [Concomitant]
     Dosage: STRENGTH: 100 MG
     Route: 048
  6. NORVASC [Concomitant]
     Dosage: STRENGTH: 10 MG?DOSE: 1 POSOLOGICAL UNIT
     Route: 048
  7. SIVASTIN [Concomitant]
     Dosage: STRENGTH: 40 MG
     Route: 048
  8. CATAPRES-TTS [Concomitant]
     Route: 062
  9. LANTUS [Concomitant]
     Route: 058
  10. TRITTICO [Concomitant]
     Dosage: STRENGTH: 25 MG/ML
     Route: 048
  11. LANSOX [Concomitant]
     Route: 048

REACTIONS (1)
  - Sinus bradycardia [Unknown]
